FAERS Safety Report 16687196 (Version 1)
Quarter: 2019Q4

REPORT INFORMATION
  Report Type: Spontaneous
  Country: US (occurrence: US)
  Receive Date: 20190808
  Receipt Date: 20190808
  Transmission Date: 20200122
  Serious: Yes (Life-Threatening, Hospitalization, Disabling)
  Sender: FDA-Public Use
  Company Number: None

PATIENT
  Age: 72 Year
  Sex: Female

DRUGS (1)
  1. GADOTERIDOL [Suspect]
     Active Substance: GADOTERIDOL
     Indication: MAGNETIC RESONANCE IMAGING
     Dosage: ?          OTHER FREQUENCY:ONE TIME;?
     Route: 042
     Dates: start: 20190807, end: 20190807

REACTIONS (4)
  - Contrast media reaction [None]
  - Ventricular fibrillation [None]
  - Pulseless electrical activity [None]
  - Anaphylactic reaction [None]

NARRATIVE: CASE EVENT DATE: 20190807
